FAERS Safety Report 15216143 (Version 1)
Quarter: 2018Q3

REPORT INFORMATION
  Report Type: Spontaneous
  Country: JP (occurrence: JP)
  Receive Date: 20180730
  Receipt Date: 20180730
  Transmission Date: 20181010
  Serious: Yes (Other)
  Sender: FDA-Public Use
  Company Number: PHHY2018JP050482

PATIENT
  Age: 50 Year

DRUGS (2)
  1. CARBOPLATIN. [Suspect]
     Active Substance: CARBOPLATIN
     Indication: MALIGNANT SWEAT GLAND NEOPLASM
     Dosage: UNK
     Route: 065
  2. PACLITAXEL. [Suspect]
     Active Substance: PACLITAXEL
     Indication: MALIGNANT SWEAT GLAND NEOPLASM
     Dosage: 175 MG/M2, QW
     Route: 065

REACTIONS (3)
  - Anaphylactic shock [Unknown]
  - Recurrent cancer [Unknown]
  - Malignant sweat gland neoplasm [Unknown]
